FAERS Safety Report 10260248 (Version 1)
Quarter: 2014Q2

REPORT INFORMATION
  Report Type: Spontaneous
  Country: US (occurrence: US)
  Receive Date: 20140625
  Receipt Date: 20140625
  Transmission Date: 20141212
  Serious: No
  Sender: FDA-Public Use
  Company Number: US-SA-2014SA043935

PATIENT
  Sex: Male
  Weight: 92.98 kg

DRUGS (7)
  1. AUBAGIO [Suspect]
     Indication: MULTIPLE SCLEROSIS
     Route: 048
     Dates: start: 201401
  2. BACLOFEN [Concomitant]
  3. ZANAFLEX [Concomitant]
  4. STOOL SOFTENER [Concomitant]
  5. VITAMIN D [Concomitant]
     Dosage: DOSE:400 UNIT(S)
  6. MSM [Concomitant]
  7. WELLBUTRIN [Concomitant]

REACTIONS (1)
  - Disorientation [Recovering/Resolving]
